FAERS Safety Report 18051625 (Version 1)
Quarter: 2020Q3

REPORT INFORMATION
  Report Type: Report from Study
  Country: CA (occurrence: CA)
  Receive Date: 20200721
  Receipt Date: 20200721
  Transmission Date: 20201103
  Serious: Yes (Disabling)
  Sender: FDA-Public Use
  Company Number: CA-JNJFOC-20200616195

PATIENT
  Age: 36 Year
  Sex: Female
  Weight: 79 kg

DRUGS (1)
  1. REMICADE [Suspect]
     Active Substance: INFLIXIMAB
     Indication: COLITIS ULCERATIVE
     Dosage: 10 MG/KG?LAST INFUSION ON 13?JUN?2020
     Route: 042
     Dates: start: 20100915

REACTIONS (7)
  - Drug ineffective [Unknown]
  - Alopecia [Unknown]
  - Arthralgia [Unknown]
  - General physical health deterioration [Unknown]
  - Emotional distress [Unknown]
  - Migraine [Unknown]
  - Arthritis [Not Recovered/Not Resolved]

NARRATIVE: CASE EVENT DATE: 20200601
